FAERS Safety Report 15333926 (Version 1)
Quarter: 2018Q3

REPORT INFORMATION
  Report Type: Spontaneous
  Country: US (occurrence: US)
  Receive Date: 20180830
  Receipt Date: 20180830
  Transmission Date: 20181010
  Serious: No
  Sender: FDA-Public Use
  Company Number: US-ASTRAZENECA-2018SE98593

PATIENT
  Age: 21569 Day
  Sex: Male
  Weight: 68.9 kg

DRUGS (22)
  1. VITAMIN B12 [Concomitant]
     Active Substance: CYANOCOBALAMIN
  2. CIALIS [Concomitant]
     Active Substance: TADALAFIL
     Indication: PROSTATIC DISORDER
     Route: 048
  3. CIALIS [Concomitant]
     Active Substance: TADALAFIL
     Indication: ERECTILE DYSFUNCTION
     Route: 048
  4. CRESTOR [Suspect]
     Active Substance: ROSUVASTATIN CALCIUM
     Indication: ARTERIOSCLEROSIS
     Route: 048
     Dates: start: 200508, end: 201704
  5. CRESTOR [Suspect]
     Active Substance: ROSUVASTATIN CALCIUM
     Indication: ARTERIOSCLEROSIS
     Dosage: GENERIC, 10 MG, DAILY
     Route: 048
     Dates: start: 201704, end: 201803
  6. PROLIA [Concomitant]
     Active Substance: DENOSUMAB
     Indication: OSTEOPOROSIS
     Route: 058
     Dates: start: 2016
  7. DYAZIDE [Concomitant]
     Active Substance: HYDROCHLOROTHIAZIDE\TRIAMTERENE
     Indication: BLOOD PRESSURE ABNORMAL
     Route: 048
     Dates: start: 2005
  8. ZANTAC [Concomitant]
     Active Substance: RANITIDINE HYDROCHLORIDE
     Indication: GASTRIC ULCER
     Route: 048
     Dates: start: 201805
  9. CALCIUM [Concomitant]
     Active Substance: CALCIUM
     Route: 048
  10. CRESTOR [Suspect]
     Active Substance: ROSUVASTATIN CALCIUM
     Indication: BLOOD CHOLESTEROL INCREASED
     Dosage: GENERIC, 10 MG, DAILY
     Route: 048
     Dates: start: 201704, end: 201803
  11. DYAZIDE [Concomitant]
     Active Substance: HYDROCHLOROTHIAZIDE\TRIAMTERENE
     Indication: MENIERE^S DISEASE
     Route: 048
     Dates: start: 2005
  12. ZANTAC [Concomitant]
     Active Substance: RANITIDINE HYDROCHLORIDE
     Indication: DYSPEPSIA
     Dosage: 150 AS REQUIRED AS REQUIRED
     Route: 048
     Dates: start: 2013
  13. MAGNESIUM [Concomitant]
     Active Substance: MAGNESIUM
     Indication: MENIERE^S DISEASE
     Route: 048
     Dates: start: 2005
  14. LORAZEPAM. [Concomitant]
     Active Substance: LORAZEPAM
     Indication: MENIERE^S DISEASE
     Route: 048
  15. PRO BIOTIC [Concomitant]
     Route: 048
     Dates: start: 2018
  16. CRESTOR [Suspect]
     Active Substance: ROSUVASTATIN CALCIUM
     Indication: BLOOD CHOLESTEROL INCREASED
     Route: 048
     Dates: start: 200508, end: 201704
  17. LEVOTHYROXINE. [Concomitant]
     Active Substance: LEVOTHYROXINE
     Indication: THYROID DISORDER
     Route: 048
  18. TESTOSTERONE. [Concomitant]
     Active Substance: TESTOSTERONE
     Indication: BLOOD TESTOSTERONE DECREASED
     Route: 030
  19. LISINOPRIL. [Suspect]
     Active Substance: LISINOPRIL
     Indication: HYPERTENSION
     Route: 048
     Dates: start: 2011
  20. GENERIC NEXIUM CITRO [Concomitant]
     Indication: BARRETT^S OESOPHAGUS
     Route: 048
     Dates: start: 2013
  21. VITAMIN D3 [Concomitant]
     Active Substance: CHOLECALCIFEROL
     Indication: OSTEOPOROSIS
  22. L?ARGININE [Concomitant]
     Active Substance: ARGININE

REACTIONS (21)
  - Head injury [Unknown]
  - Gastric ulcer [Recovered/Resolved]
  - Blood testosterone decreased [Unknown]
  - Drug ineffective [Unknown]
  - Blood cholesterol increased [Unknown]
  - Myositis [Unknown]
  - Intervertebral disc protrusion [Unknown]
  - Compression fracture [Unknown]
  - Hypertension [Unknown]
  - Inguinal hernia [Unknown]
  - Fall [Unknown]
  - Barrett^s oesophagus [Unknown]
  - Rotator cuff syndrome [Unknown]
  - Osteoporosis [Unknown]
  - Dyspepsia [Unknown]
  - Osteoarthritis [Unknown]
  - Lumbar spinal stenosis [Unknown]
  - Cerebrospinal fluid circulation disorder [Unknown]
  - Pain [Unknown]
  - Balance disorder [Unknown]
  - Myelopathy [Unknown]

NARRATIVE: CASE EVENT DATE: 20060211
